FAERS Safety Report 25478130 (Version 1)
Quarter: 2025Q2

REPORT INFORMATION
  Report Type: Spontaneous
  Country: AU (occurrence: AU)
  Receive Date: 20250625
  Receipt Date: 20250625
  Transmission Date: 20250716
  Serious: Yes (Hospitalization)
  Sender: CHEPLAPHARM
  Company Number: AU-CHEPLA-2025007672

PATIENT
  Age: 29 Year
  Sex: Female

DRUGS (2)
  1. OLANZAPINE [Suspect]
     Active Substance: OLANZAPINE
     Indication: Product used for unknown indication
  2. INVEGA SUSTENNA [Suspect]
     Active Substance: PALIPERIDONE PALMITATE
     Indication: Product used for unknown indication

REACTIONS (8)
  - Back pain [Unknown]
  - Neck pain [Unknown]
  - Muscle rigidity [Unknown]
  - Gait disturbance [Unknown]
  - Restlessness [Unknown]
  - Akathisia [Unknown]
  - Salivary hypersecretion [Unknown]
  - Tachycardia [Unknown]
